FAERS Safety Report 6119509-8 (Version None)
Quarter: 2009Q1

REPORT INFORMATION
  Report Type: 
  Country: None (occurrence: None)
  Receive Date: 20090316
  Receipt Date: 20090306
  Transmission Date: 20090719
  Serious: Yes (Death, Hospitalization)
  Sender: FDA-Public Use
  Company Number: A0773209A

PATIENT
  Age: 54 Year
  Sex: Male
  Weight: 136.4 kg

DRUGS (9)
  1. AVANDIA [Suspect]
     Indication: DIABETES MELLITUS
     Dosage: 4MG PER DAY
     Route: 048
     Dates: start: 20060303, end: 20070327
  2. AVANDAMET [Suspect]
     Indication: DIABETES MELLITUS
     Route: 048
     Dates: start: 20050121, end: 20070327
  3. INSULIN [Concomitant]
  4. TOPROL-XL [Concomitant]
  5. LASIX [Concomitant]
     Dates: start: 20010101, end: 20060101
  6. SIMVASTATIN [Concomitant]
  7. ATACAND [Concomitant]
  8. NORVASC [Concomitant]
  9. HYDRALAZINE HCL [Concomitant]

REACTIONS (2)
  - CARDIAC FAILURE CONGESTIVE [None]
  - DEATH [None]
